FAERS Safety Report 20410977 (Version 1)
Quarter: 2022Q1

REPORT INFORMATION
  Report Type: Spontaneous
  Country: FR (occurrence: FR)
  Receive Date: 20220201
  Receipt Date: 20220201
  Transmission Date: 20220424
  Serious: Yes (Hospitalization)
  Sender: FDA-Public Use
  Company Number: None

PATIENT
  Age: 51 Year
  Sex: Female
  Weight: 99 kg

DRUGS (1)
  1. DOTAREM [Suspect]
     Active Substance: GADOTERATE MEGLUMINE
     Indication: Magnetic resonance imaging
     Dosage: 0.2ML/KG
     Route: 042
     Dates: start: 20220111, end: 20220111

REACTIONS (4)
  - Cough [Recovering/Resolving]
  - Dyspnoea [Recovering/Resolving]
  - Urticaria [Recovering/Resolving]
  - Bronchospasm [Recovering/Resolving]

NARRATIVE: CASE EVENT DATE: 20220111
